FAERS Safety Report 4538351-2 (Version None)
Quarter: 2004Q4

REPORT INFORMATION
  Report Type: 
  Country: None (occurrence: None)
  Receive Date: 20041217
  Receipt Date: 20041201
  Transmission Date: 20050328
  Serious: Yes (Disabling)
  Sender: FDA-Public Use
  Company Number: WAES 0412FRA00012

PATIENT
  Age: 41 Year
  Sex: Male

DRUGS (7)
  1. CRIXIVAN [Suspect]
     Indication: HIV INFECTION
     Dosage: 800 MG/ TID PO
     Route: 048
     Dates: start: 19980101, end: 20020101
  2. CAP STAVUDINE [Suspect]
     Indication: HIV INFECTION
     Dosage: 60 MG/ DAILY PO
     Route: 048
  3. INJ METHYLPREDNISOLONE [Suspect]
     Indication: CENTRAL NERVOUS SYSTEM LYMPHOMA
     Dosage: 2 MG/KG/ DAILY IV
     Route: 042
     Dates: start: 19970101
  4. TAB LAMIVUDINE [Suspect]
     Indication: HIV INFECTION
     Dosage: 150 MG/ BID PO
     Route: 048
  5. CAP EFAVIRENZ [Suspect]
     Indication: HIV INFECTION
     Dosage: 600 MG/ DAILY PO
     Route: 048
  6. THERAPY UNSPECIFIED [Concomitant]
  7. CARBIMAZOLE [Concomitant]

REACTIONS (2)
  - ASEPTIC NECROSIS BONE [None]
  - BLOOD CHOLESTEROL INCREASED [None]
